FAERS Safety Report 17689937 (Version 1)
Quarter: 2020Q2

REPORT INFORMATION
  Report Type: Spontaneous
  Country: CN (occurrence: CN)
  Receive Date: 20200421
  Receipt Date: 20200421
  Transmission Date: 20200714
  Serious: Yes (Other)
  Sender: FDA-Public Use
  Company Number: CN-BAYER-2020-062525

PATIENT
  Age: 82 Year
  Sex: Male

DRUGS (1)
  1. CIPROBAY 200/100 MG/ML [Suspect]
     Active Substance: CIPROFLOXACIN
     Indication: PNEUMONIA
     Dosage: 0.2 G, BID
     Route: 041
     Dates: start: 20200221, end: 20200305

REACTIONS (10)
  - Food refusal [None]
  - Soliloquy [Recovered/Resolved]
  - Poor quality sleep [Recovered/Resolved]
  - Mental disorder [Recovered/Resolved]
  - Abnormal behaviour [Recovered/Resolved]
  - Dysphoria [Recovered/Resolved]
  - Aggression [Recovered/Resolved]
  - Refusal of treatment by patient [None]
  - Restlessness [Recovered/Resolved]
  - Product prescribing issue [None]

NARRATIVE: CASE EVENT DATE: 20200221
